FAERS Safety Report 10771374 (Version 3)
Quarter: 2015Q2

REPORT INFORMATION
  Report Type: Spontaneous
  Country: AT (occurrence: AT)
  Receive Date: 20150206
  Receipt Date: 20150622
  Transmission Date: 20150821
  Serious: Yes (Hospitalization, Other)
  Sender: FDA-Public Use
  Company Number: AT-ELI_LILLY_AND_COMPANY-AT201501010878

PATIENT
  Sex: Male
  Weight: 68 kg

DRUGS (5)
  1. FERRETAB                           /00023505/ [Concomitant]
  2. FORSTEO [Suspect]
     Active Substance: TERIPARATIDE
     Indication: PRODUCT USED FOR UNKNOWN INDICATION
     Dosage: 1 DF, QD
     Route: 058
     Dates: start: 201310
  3. CALCIDURAN VIT. D3 [Concomitant]
  4. CALCIUM GLYCEROPHOSPHATE\CELLULOSE\POLYETHYLENE GLYCOL\SACCHARIN SODIUM\SODIUM HYDROXIDE\SODIUM LAURYL SULFATE\SODIUM MAGNESIUM SILICATE\SODIUM MONOFLUOROPHOSPHATE\SORBITOL\WATER [Concomitant]
     Active Substance: CALCIUM GLYCEROPHOSPHATE\POLYETHYLENE GLYCOLS\POWDERED CELLULOSE\SACCHARIN SODIUM DIHYDRATE\SODIUM HYDROXIDE\SODIUM LAURYL SULFATE\SODIUM MAGNESIUM SILICATE\SODIUM MONOFLUOROPHOSPHATE\SORBITOL\WATER
  5. OLEOVIT                            /00056001/ [Concomitant]

REACTIONS (7)
  - Iron deficiency anaemia [Recovered/Resolved]
  - Haemoglobin decreased [Unknown]
  - Thrombocytopenia [Unknown]
  - White blood cell count decreased [Unknown]
  - Myelodysplastic syndrome [Unknown]
  - Dyspnoea [Unknown]
  - Asthenia [Unknown]
